FAERS Safety Report 5798461-9 (Version None)
Quarter: 2008Q3

REPORT INFORMATION
  Report Type: 
  Country: None (occurrence: None)
  Receive Date: 20080702
  Receipt Date: 20080619
  Transmission Date: 20090109
  Serious: Yes (Other)
  Sender: FDA-Public Use
  Company Number: PHHY2008JP12014

PATIENT
  Age: 26 Year
  Sex: Male

DRUGS (1)
  1. ZADITEN [Suspect]
     Indication: RHINORRHOEA
     Dosage: UNK
     Route: 048

REACTIONS (2)
  - ACCIDENTAL OVERDOSE [None]
  - SOMNOLENCE [None]
